FAERS Safety Report 10581311 (Version 1)
Quarter: 2014Q4

REPORT INFORMATION
  Report Type: Spontaneous
  Country: US (occurrence: None)
  Receive Date: 20141110
  Receipt Date: 20141110
  Transmission Date: 20150529
  Serious: Yes (Hospitalization)
  Sender: FDA-Public Use
  Company Number: 001826143A

PATIENT
  Age: 35 Year
  Sex: Female

DRUGS (1)
  1. SHEER COVER NOURISHING MOISTURIZER SPF 15 [Suspect]
     Active Substance: OCTINOXATE\OCTISALATE\OXYBENZONE
     Dosage: DERMAL
     Dates: start: 20140515

REACTIONS (7)
  - Rash [None]
  - Throat tightness [None]
  - Dyspnoea [None]
  - Road traffic accident [None]
  - Swelling face [None]
  - Eye swelling [None]
  - Rash erythematous [None]

NARRATIVE: CASE EVENT DATE: 20140515
